FAERS Safety Report 15557750 (Version 7)
Quarter: 2019Q1

REPORT INFORMATION
  Report Type: Report from Study
  Country: GB (occurrence: GB)
  Receive Date: 20181027
  Receipt Date: 20190315
  Transmission Date: 20190417
  Serious: Yes (Hospitalization)
  Sender: FDA-Public Use
  Company Number: GB-ROCHE-2202949

PATIENT
  Age: 78 Year
  Sex: Male
  Weight: 72.6 kg

DRUGS (8)
  1. ATEZOLIZUMAB. [Suspect]
     Active Substance: ATEZOLIZUMAB
     Indication: HEPATOCELLULAR CARCINOMA
     Dosage: DATE OF MOST RECENT DOSE OF ATEZOLIZUMAB PRIOR TO AE ONSET: 16/OCT/2018
     Route: 042
     Dates: start: 20180917
  2. RAMIPRIL. [Concomitant]
     Active Substance: RAMIPRIL
     Indication: HYPERTENSION
     Route: 065
     Dates: start: 20080603
  3. TAMSULOSIN [Concomitant]
     Active Substance: TAMSULOSIN
     Indication: URINARY RETENTION
  4. FELYPRESSIN/PRILOCAINE HYDROCHLORIDE [Concomitant]
     Route: 065
     Dates: start: 20181122, end: 20181122
  5. BEVACIZUMAB. [Suspect]
     Active Substance: BEVACIZUMAB
     Indication: HEPATOCELLULAR CARCINOMA
     Dosage: DATE OF MOST RECENT DOSE OF BEVACIZUMAB PRIOR TO AE ONSET (1152 MG): 16/OCT/2018
     Route: 042
     Dates: start: 20180917
  6. METFORM [Concomitant]
     Active Substance: METFORMIN HYDROCHLORIDE
     Indication: TYPE 2 DIABETES MELLITUS
  7. FELYPRESSIN/PRILOCAINE HYDROCHLORIDE [Concomitant]
     Indication: TOOTH EXTRACTION
     Dosage: 0.54 MICROGRAMS/ML
     Route: 065
     Dates: start: 20181011, end: 20181011
  8. AMLODIPINE [Concomitant]
     Active Substance: AMLODIPINE BESYLATE
     Indication: HYPERTENSION
     Route: 065
     Dates: end: 20181008

REACTIONS (1)
  - Infusion related reaction [Recovering/Resolving]

NARRATIVE: CASE EVENT DATE: 20181016
